FAERS Safety Report 8590649-7 (Version None)
Quarter: 2012Q3

REPORT INFORMATION
  Report Type: 
  Country: None (occurrence: None)
  Receive Date: 20120731
  Receipt Date: 20120717
  Transmission Date: 20120928
  Serious: Yes (Life-Threatening)
  Sender: FDA-Public Use
  Company Number: 2012MA009040

PATIENT
  Age: 7 Year
  Sex: Male

DRUGS (6)
  1. DOPAMINE HCL [Concomitant]
  2. CLONAZEPAM [Concomitant]
  3. PHENOBARBITAL TAB [Suspect]
     Indication: CONVULSION
     Dosage: 500 MG;; IV
     Route: 042
     Dates: start: 20120626, end: 20120629
  4. KEPPRA [Concomitant]
  5. MORPHINE [Concomitant]
  6. VALPROIC ACID [Concomitant]

REACTIONS (1)
  - MEGACOLON [None]
